FAERS Safety Report 10664501 (Version 1)
Quarter: 2014Q4

REPORT INFORMATION
  Report Type: Spontaneous
  Country: US (occurrence: None)
  Receive Date: 20141218
  Receipt Date: 20141218
  Transmission Date: 20150529
  Serious: No
  Sender: FDA-Public Use
  Company Number: None

PATIENT
  Sex: Male

DRUGS (1)
  1. NEXAVAR [Suspect]
     Active Substance: SORAFENIB
     Indication: GALLBLADDER CANCER
     Route: 048
     Dates: start: 20140925, end: 20141212

REACTIONS (4)
  - Hepatic failure [None]
  - Abdominal pain upper [None]
  - Chest pain [None]
  - Diarrhoea [None]
